FAERS Safety Report 9774775 (Version 1)
Quarter: 2013Q4

REPORT INFORMATION
  Report Type: Spontaneous
  Country: US (occurrence: US)
  Receive Date: 20131220
  Receipt Date: 20131220
  Transmission Date: 20140711
  Serious: No
  Sender: FDA-Public Use
  Company Number: US-GALDERMA-US12415548

PATIENT
  Sex: Female

DRUGS (1)
  1. METROGEL (METRONIDAZOLE GEL) [Suspect]
     Indication: ROSACEA
     Dosage: 0.75%
     Route: 061

REACTIONS (1)
  - Dry skin [Unknown]
